FAERS Safety Report 5743149-3 (Version None)
Quarter: 2008Q2

REPORT INFORMATION
  Report Type: 
  Country: None (occurrence: None)
  Receive Date: 20080519
  Receipt Date: 20080507
  Transmission Date: 20081010
  Serious: Yes (Hospitalization)
  Sender: FDA-Public Use
  Company Number: MX-GENENTECH-261077

PATIENT
  Sex: Female
  Weight: 50 kg

DRUGS (12)
  1. BLINDED BEVACIZUMAB [Suspect]
     Indication: NON-HODGKIN'S LYMPHOMA
     Dosage: 15 MG/KG, Q3W
     Route: 042
     Dates: start: 20080421
  2. CYCLOPHOSPHAMIDE [Suspect]
     Indication: NON-HODGKIN'S LYMPHOMA
     Dosage: 15 MG/KG, Q3W
     Route: 042
     Dates: start: 20080421
  3. DOXORUBICIN HCL [Suspect]
     Indication: NON-HODGKIN'S LYMPHOMA
     Dosage: 15 MG/KG, Q3W
     Route: 042
     Dates: start: 20080421
  4. BLINDED PLACEBO [Suspect]
     Indication: NON-HODGKIN'S LYMPHOMA
     Dosage: 15 MG/KG, Q3W
     Route: 042
     Dates: start: 20080421
  5. PREDNISONE [Suspect]
     Indication: NON-HODGKIN'S LYMPHOMA
     Dosage: 15 MG/KG, Q3W
     Route: 042
     Dates: start: 20080421
  6. BLINDED RITUXIMAB [Suspect]
     Indication: NON-HODGKIN'S LYMPHOMA
     Dosage: 15 MG/KG, Q3W
     Route: 042
     Dates: start: 20080421
  7. VINCRISTINE [Suspect]
     Indication: NON-HODGKIN'S LYMPHOMA
     Dosage: 15 MG/KG, Q3W
     Route: 042
     Dates: start: 20080421
  8. RITUXIMAB [Suspect]
     Indication: NON-HODGKIN'S LYMPHOMA
     Dosage: 355 MG/M2, Q3W
     Route: 042
     Dates: start: 20080422
  9. CYCLOPHOSPHAMIDE [Suspect]
     Indication: NON-HODGKIN'S LYMPHOMA
     Dosage: 750 MG/M2, Q3W
     Route: 042
     Dates: start: 20080422
  10. DOXORUBICIN HCL [Concomitant]
     Indication: DRUG USE FOR UNKNOWN INDICATION
     Dates: start: 20080422, end: 20080422
  11. VINCRISTINE [Concomitant]
     Indication: DRUG USE FOR UNKNOWN INDICATION
     Dosage: UNK, UNK
     Dates: start: 20080422, end: 20080422
  12. PREDNISONE TAB [Concomitant]
     Indication: DRUG USE FOR UNKNOWN INDICATION
     Dates: start: 20080422, end: 20080426

REACTIONS (2)
  - ABDOMINAL PAIN [None]
  - DEHYDRATION [None]
